FAERS Safety Report 6094678-7 (Version None)
Quarter: 2009Q1

REPORT INFORMATION
  Report Type: 
  Country: None (occurrence: None)
  Receive Date: 20090226
  Receipt Date: 20090223
  Transmission Date: 20090719
  Serious: Yes (Other)
  Sender: FDA-Public Use
  Company Number: IT-MERCK-0902ITA00027

PATIENT
  Age: 78 Year
  Sex: Male

DRUGS (8)
  1. PRIMAXIN [Suspect]
     Indication: CATHETER SEPSIS
     Route: 051
     Dates: start: 20090129, end: 20090130
  2. PRIMAXIN [Suspect]
     Route: 051
     Dates: start: 20090131
  3. CARVEDILOL [Concomitant]
     Route: 065
  4. MESALAMINE [Concomitant]
     Route: 065
  5. QUETIAPINE FUMARATE [Concomitant]
     Route: 065
  6. PHENOBARBITAL [Concomitant]
     Route: 065
  7. ALPRAZOLAM [Concomitant]
     Route: 065
  8. LANSOPRAZOLE [Concomitant]
     Route: 065

REACTIONS (1)
  - EPILEPSY [None]
